FAERS Safety Report 16708648 (Version 1)
Quarter: 2019Q3

REPORT INFORMATION
  Report Type: Spontaneous
  Country: CN (occurrence: CN)
  Receive Date: 20190816
  Receipt Date: 20190816
  Transmission Date: 20191004
  Serious: Yes (Hospitalization)
  Sender: FDA-Public Use
  Company Number: CN-ABBVIE-19P-035-2890383-00

PATIENT
  Age: 52 Year
  Sex: Female
  Weight: 49 kg

DRUGS (3)
  1. BETAHISTINE [Concomitant]
     Active Substance: BETAHISTINE
     Indication: VERTIGO
     Route: 041
     Dates: start: 20190804, end: 20190809
  2. LIPANTHYL [Suspect]
     Active Substance: FENOFIBRATE
     Indication: HYPERLIPIDAEMIA
     Route: 048
     Dates: start: 20190805, end: 20190809
  3. LIGUSTRAZINE HYDROCHLORIDE W/SALVIA MILTIORRH [Concomitant]
     Indication: VERTIGO
     Route: 041
     Dates: start: 20190804, end: 20190809

REACTIONS (1)
  - Hepatic function abnormal [Unknown]

NARRATIVE: CASE EVENT DATE: 20190812
